FAERS Safety Report 7998609-1 (Version None)
Quarter: 2011Q4

REPORT INFORMATION
  Report Type: 
  Country: None (occurrence: None)
  Receive Date: 20111221
  Receipt Date: 20111219
  Transmission Date: 20120403
  Serious: Yes (Hospitalization)
  Sender: FDA-Public Use
  Company Number: BR-ABBOTT-11P-020-0883186-00

PATIENT
  Sex: Female

DRUGS (9)
  1. METICORTEN [Concomitant]
     Indication: CROHN'S DISEASE
  2. LOSARTAN POTASSIUM [Concomitant]
     Indication: HYPERTENSION
     Route: 048
  3. PANTOPRAZOLE [Concomitant]
     Indication: GASTRIC DISORDER
     Route: 048
  4. LEVOTHYROXINE SODIUM [Concomitant]
     Indication: THYROID DISORDER
     Route: 048
  5. PANTOPRAZOLE [Concomitant]
     Indication: PROPHYLAXIS
  6. HUMIRA [Suspect]
     Route: 058
  7. METICORTEN [Concomitant]
     Indication: SYSTEMIC LUPUS ERYTHEMATOSUS
     Route: 048
  8. GLIMEPIRIDE [Concomitant]
     Indication: DIABETES MELLITUS
     Dosage: 1 TO 2 TABLETS A DAY
     Route: 048
  9. HUMIRA [Suspect]
     Indication: CROHN'S DISEASE
     Dosage: INDUCTION DOSE
     Route: 058
     Dates: start: 20111209, end: 20111209

REACTIONS (6)
  - CROHN'S DISEASE [None]
  - FLATULENCE [None]
  - FAECALOMA [None]
  - ABDOMINAL PAIN [None]
  - CONSTIPATION [None]
  - VOMITING [None]
